FAERS Safety Report 20148663 (Version 2)
Quarter: 2022Q1

REPORT INFORMATION
  Report Type: Spontaneous
  Country: GB (occurrence: GB)
  Receive Date: 20211204
  Receipt Date: 20220110
  Transmission Date: 20220423
  Serious: Yes (Hospitalization, Other)
  Sender: FDA-Public Use
  Company Number: GB-Accord-245044

PATIENT
  Age: 37 Year
  Sex: Male

DRUGS (7)
  1. CLOZAPINE [Interacting]
     Active Substance: CLOZAPINE
     Indication: Schizophrenia
     Dosage: 200 MG AT 08:00 AND 700 MG AT 20:00
     Dates: start: 2009
  2. EPINEPHRINE [Interacting]
     Active Substance: EPINEPHRINE
     Indication: Shock
     Dosage: 0.06 AND 0.19 UG/KG PER MINUTE
     Route: 040
  3. AMISULPRIDE [Concomitant]
     Active Substance: AMISULPRIDE
  4. LITHIUM [Concomitant]
     Active Substance: LITHIUM
  5. POLYETHYLENE GLYCOLS [Concomitant]
     Active Substance: POLYETHYLENE GLYCOLS
  6. SENNA [Concomitant]
     Active Substance: SENNA LEAF\SENNOSIDES\SENNOSIDES A AND B
  7. NOREPINEPHRINE [Concomitant]
     Active Substance: NOREPINEPHRINE

REACTIONS (8)
  - Hypotension [Recovered/Resolved]
  - Drug interaction [Unknown]
  - Left ventricular dysfunction [Recovered/Resolved]
  - Paradoxical drug reaction [Unknown]
  - Shock [Unknown]
  - Ileus paralytic [Unknown]
  - Intestinal pseudo-obstruction [Unknown]
  - Faecaloma [Unknown]
